FAERS Safety Report 18455124 (Version 1)
Quarter: 2020Q4

REPORT INFORMATION
  Report Type: Spontaneous
  Country: CA (occurrence: CA)
  Receive Date: 20201102
  Receipt Date: 20201102
  Transmission Date: 20210114
  Serious: Yes (Other)
  Sender: FDA-Public Use
  Company Number: CA-PURDUE-USA-2020-0160706

PATIENT
  Age: 44 Year
  Sex: Male

DRUGS (17)
  1. LAMOTRIGINE. [Concomitant]
     Active Substance: LAMOTRIGINE
  2. MOCLOBEMIDE [Concomitant]
     Active Substance: MOCLOBEMIDE
  3. HYDROMORPHONE HCL (SIMILAR TO 19-892) [Suspect]
     Active Substance: HYDROMORPHONE HYDROCHLORIDE
     Indication: BACK PAIN
     Dosage: 8 MG, Q4H
     Route: 065
  4. LURASIDONE [Concomitant]
     Active Substance: LURASIDONE
  5. PRAMIPEXOLE. [Concomitant]
     Active Substance: PRAMIPEXOLE
  6. DEXTROAMPHETAMINE                  /00016601/ [Concomitant]
     Active Substance: DEXTROAMPHETAMINE
  7. DICLOFENAC [Concomitant]
     Active Substance: DICLOFENAC
  8. ONDANSETRON [Concomitant]
     Active Substance: ONDANSETRON
  9. HYDROMORPH CONTIN [Suspect]
     Active Substance: HYDROMORPHONE
     Dosage: 3 MG, BID
     Route: 065
  10. HYDROMORPH CONTIN [Suspect]
     Active Substance: HYDROMORPHONE
     Dosage: 3 MG, TID
     Route: 065
  11. HYDROMORPHONE HCL (SIMILAR TO 19-892) [Suspect]
     Active Substance: HYDROMORPHONE HYDROCHLORIDE
     Indication: PAIN
     Dosage: 8 MG, Q4H
     Route: 065
  12. HYDROMORPH CONTIN [Suspect]
     Active Substance: HYDROMORPHONE
     Indication: BACK PAIN
     Dosage: 3 MG, BID
     Route: 065
  13. HYDROMORPH CONTIN [Suspect]
     Active Substance: HYDROMORPHONE
     Indication: PAIN
     Dosage: 3 MG, TID
     Route: 065
  14. CANNABIS SATIVA OIL [Concomitant]
     Active Substance: CANNABIS SATIVA SUBSP. INDICA TOP
  15. ROSUVASTATIN. [Concomitant]
     Active Substance: ROSUVASTATIN
  16. SEMAGLUTIDE [Concomitant]
     Active Substance: SEMAGLUTIDE
  17. GABAPENTIN. [Concomitant]
     Active Substance: GABAPENTIN

REACTIONS (9)
  - Emotional distress [Recovered/Resolved]
  - Impaired quality of life [Recovered/Resolved]
  - Intentional product use issue [Unknown]
  - Somatic symptom disorder [Recovering/Resolving]
  - Joint injury [Unknown]
  - Drug ineffective [Unknown]
  - Fall [Unknown]
  - Drug use disorder [Recovering/Resolving]
  - Pain [Recovering/Resolving]
